FAERS Safety Report 5088656-4 (Version None)
Quarter: 2006Q3

REPORT INFORMATION
  Report Type: 
  Country: None (occurrence: None)
  Receive Date: 20060825
  Receipt Date: 20030902
  Transmission Date: 20061208
  Serious: Yes (Other)
  Sender: FDA-Public Use
  Company Number: US-GILEAD-2003-06021

PATIENT
  Sex: Male
  Weight: 71 kg

DRUGS (7)
  1. ADEFOVIR DIPIVOXIL [Suspect]
     Indication: HEPATITIS B
     Route: 048
     Dates: start: 20030529, end: 20030917
  2. AMPRENAVIR [Concomitant]
     Dates: start: 19991221
  3. TRIZIVIR [Concomitant]
     Dates: start: 20010611
  4. ACYCLOVIR [Concomitant]
     Dates: start: 19990624
  5. MULTI-VITAMIN [Concomitant]
     Dates: start: 20030506
  6. ASPIRIN [Concomitant]
     Dates: start: 20021113
  7. ALLEGRA [Concomitant]
     Dates: start: 19990624

REACTIONS (2)
  - BLOOD PHOSPHORUS DECREASED [None]
  - NEUROPATHY PERIPHERAL [None]
